FAERS Safety Report 9258999 (Version 3)
Quarter: 2014Q2

REPORT INFORMATION
  Report Type: Spontaneous
  Country: US (occurrence: US)
  Receive Date: 20130426
  Receipt Date: 20140423
  Transmission Date: 20141212
  Serious: No
  Sender: FDA-Public Use
  Company Number: US-009507513-1304USA014188

PATIENT
  Sex: Male
  Weight: 131.52 kg

DRUGS (1)
  1. PROPECIA [Suspect]
     Indication: ALOPECIA AREATA
     Dosage: 1 MG, QD
     Route: 048
     Dates: start: 20031218, end: 200703

REACTIONS (9)
  - Organic erectile dysfunction [Not Recovered/Not Resolved]
  - Headache [Unknown]
  - Hypertension [Unknown]
  - Sleep disorder [Unknown]
  - Asthma [Unknown]
  - Drug ineffective [Unknown]
  - Sexual dysfunction [Not Recovered/Not Resolved]
  - Libido decreased [Recovered/Resolved]
  - Testicular failure [Unknown]
